FAERS Safety Report 23288378 (Version 1)
Quarter: 2023Q4

REPORT INFORMATION
  Report Type: Spontaneous
  Country: US (occurrence: US)
  Receive Date: 20231212
  Receipt Date: 20231212
  Transmission Date: 20240110
  Serious: No
  Sender: FDA-Public Use
  Company Number: US-SANDOZ-SDZ2023US066291

PATIENT
  Sex: Female

DRUGS (1)
  1. DEXAMETHASONE\NEOMYCIN\POLYMYXIN B [Suspect]
     Active Substance: DEXAMETHASONE\NEOMYCIN\POLYMYXIN B
     Indication: Product used for unknown indication
     Dosage: 3.5 G
     Route: 065

REACTIONS (3)
  - Vision blurred [Unknown]
  - Dacryostenosis acquired [Unknown]
  - Product quality issue [Unknown]
